FAERS Safety Report 23144992 (Version 2)
Quarter: 2024Q1

REPORT INFORMATION
  Report Type: Spontaneous
  Country: CA (occurrence: CA)
  Receive Date: 20231103
  Receipt Date: 20240125
  Transmission Date: 20240410
  Serious: Yes (Other)
  Sender: FDA-Public Use
  Company Number: CA-PFIZER INC-PV202300092796

PATIENT
  Age: 18 Year
  Sex: Male
  Weight: 55.5 kg

DRUGS (8)
  1. RAPAMUNE [Suspect]
     Active Substance: SIROLIMUS
     Indication: Bone marrow transplant rejection
     Dosage: 6 MG, DAILY (1MG X 6.00 DAILY)
  2. RAPAMUNE [Suspect]
     Active Substance: SIROLIMUS
     Dosage: 4 MG, DAILY (4 MG X 1.00 DAILY)
  3. ACYCLOVIR [Concomitant]
     Active Substance: ACYCLOVIR
     Dosage: 400 MG, 1X/DAY (400 TABLET, TAKE 1 TABLET (400MG) BY MOUTH ONCE DAILY)
     Route: 048
  4. SEPTRA [Concomitant]
     Active Substance: SULFAMETHOXAZOLE\TRIMETHOPRIM
     Dosage: UNK, 2X/DAY (400-80MG TABLET, TAKE 1.5 TABLET (120MG TRIMETHOPRIM) BY MOUTH TWICE DAILY)
     Route: 048
  5. VITAMIN D3 [Concomitant]
     Active Substance: CHOLECALCIFEROL
     Dosage: 1000 IU, 1X/DAY (TAKE 1 TABLET (1000U) BY MOUTH ONCE DAILY)
     Route: 048
  6. SODIUM CHLORIDE [Concomitant]
     Active Substance: SODIUM CHLORIDE
     Dosage: 400 ML (0.9 PERCENT SODIUM CHLORIDE 400 ML/HOUR)
  7. ABATACEPT [Concomitant]
     Active Substance: ABATACEPT
     Dosage: UNK (COMPLETED)
  8. PCP [PROCHLORPERAZINE MALEATE] [Concomitant]
     Dosage: UNK

REACTIONS (7)
  - Serum ferritin increased [Unknown]
  - Oral pain [Unknown]
  - Mucosal dryness [Unknown]
  - Dry mouth [Unknown]
  - Mouth ulceration [Unknown]
  - Abdominal tenderness [Unknown]
  - Off label use [Unknown]
